FAERS Safety Report 16514836 (Version 2)
Quarter: 2019Q3

REPORT INFORMATION
  Report Type: Spontaneous
  Country: US (occurrence: US)
  Receive Date: 20190702
  Receipt Date: 20190708
  Transmission Date: 20191004
  Serious: Yes (Other)
  Sender: FDA-Public Use
  Company Number: US-PFIZER INC-2019272988

PATIENT
  Age: 2 Year
  Sex: Female

DRUGS (12)
  1. TACROLIMUS. [Concomitant]
     Active Substance: TACROLIMUS
     Indication: IMMUNOSUPPRESSION
     Dosage: UNK (INDUCTION)
  2. ACETYLSALICYLIC ACID [Concomitant]
     Active Substance: ASPIRIN
     Indication: ANTICOAGULANT THERAPY
     Dosage: UNK
  3. RITUXIMAB. [Concomitant]
     Active Substance: RITUXIMAB
     Indication: EPSTEIN-BARR VIRAEMIA
     Dosage: UNK (FOUR DOSES)
  4. BASILIXIMAB [Concomitant]
     Active Substance: BASILIXIMAB
     Indication: IMMUNOSUPPRESSION
     Dosage: UNK (INDUCTION)
  5. HEPARIN [Concomitant]
     Active Substance: HEPARIN SODIUM
     Indication: ANTICOAGULANT THERAPY
     Dosage: UNK
  6. SIROLIMUS. [Concomitant]
     Active Substance: SIROLIMUS
     Indication: IMMUNOSUPPRESSION
     Dosage: UNK (MONOTHERAPY)
  7. DOCETAXEL. [Suspect]
     Active Substance: DOCETAXEL
     Indication: HEPATIC ANGIOSARCOMA
     Dosage: 50 MG/M2, CYCLIC (ONE CYCLE,EVERY 21 DAYS,FIVE MORE CYCLES,TOTAL OF SIX COMPLETED CYCLES)
  8. DOXORUBICIN HCL [Suspect]
     Active Substance: DOXORUBICIN HYDROCHLORIDE
     Indication: HEPATIC ANGIOSARCOMA
     Dosage: 50 MG/M2, CYCLIC (ONE CYCLE,EVERY 21 DAYS,FIVE MORE CYCLES,TOTAL OF SIX COMPLETED CYCLES)
  9. IFOSFAMIDE. [Suspect]
     Active Substance: IFOSFAMIDE
     Indication: HEPATIC ANGIOSARCOMA
     Dosage: 110 MG/KG, CYCLIC (TWO DOSES,EVERY 21 DAYS,FIVE MORE CYCLES,TOTAL OF SIX COMPLETED CYCLES)
  10. VALGANCICLOVIR. [Suspect]
     Active Substance: VALGANCICLOVIR
     Indication: INFECTION PROPHYLAXIS
     Dosage: UNK
  11. PENTAMIDINE [Concomitant]
     Active Substance: PENTAMIDINE
     Indication: INFECTION PROPHYLAXIS
     Dosage: UNK, MONTHLY
  12. BACTRIM [Suspect]
     Active Substance: SULFAMETHOXAZOLE\TRIMETHOPRIM
     Indication: INFECTION PROPHYLAXIS
     Dosage: UNK

REACTIONS (5)
  - Bone marrow failure [Unknown]
  - Pyrexia [Unknown]
  - Product use in unapproved indication [Unknown]
  - Off label use [Unknown]
  - Neutropenia [Unknown]
